FAERS Safety Report 6010822-1 (Version None)
Quarter: 2008Q4

REPORT INFORMATION
  Report Type: 
  Country: None (occurrence: None)
  Receive Date: 20081218
  Receipt Date: 20081209
  Transmission Date: 20090506
  Serious: Yes (Other)
  Sender: FDA-Public Use
  Company Number: PHBS2008AT06617

PATIENT
  Age: 6 Year
  Sex: Male

DRUGS (1)
  1. IMATINIB MESYLATE [Suspect]
     Indication: GLIOMA
     Dosage: 230 MG/M2/DAY
     Route: 048

REACTIONS (2)
  - MENTAL DISORDER [None]
  - TREATMENT NONCOMPLIANCE [None]
